FAERS Safety Report 7141477-0 (Version None)
Quarter: 2010Q4

REPORT INFORMATION
  Report Type: 
  Country: None (occurrence: None)
  Receive Date: 20101207
  Receipt Date: 20101201
  Transmission Date: 20110411
  Serious: Yes (Death, Hospitalization)
  Sender: FDA-Public Use
  Company Number: PHHY2010CR80735

PATIENT
  Age: 55 Year
  Sex: Female

DRUGS (5)
  1. FORADIL [Suspect]
     Indication: ASTHMA
     Dosage: 12 MCG
     Dates: start: 20090901
  2. MIFLONIDE [Suspect]
     Indication: ASTHMA
     Dosage: UNK
     Dates: start: 20090901
  3. AERIUS [Concomitant]
  4. FORMOTEROL FUMARATE [Concomitant]
  5. ANTIHYPERTENSIVE DRUGS [Concomitant]

REACTIONS (4)
  - H1N1 INFLUENZA [None]
  - PULMONARY OEDEMA [None]
  - RESPIRATORY DISORDER [None]
  - SEPTIC SHOCK [None]
